FAERS Safety Report 8792290 (Version 1)
Quarter: 2012Q4

REPORT INFORMATION
  Report Type: 
  Country: US (occurrence: US)
  Receive Date: 20120918
  Receipt Date: 20120918
  Transmission Date: 20130627
  Serious: No
  Sender: FDA-Public Use
  Company Number: US-PFIZER INC-2012227819

PATIENT
  Age: 36 Year
  Sex: Female
  Weight: 65.76 kg

DRUGS (6)
  1. LYRICA [Suspect]
     Indication: FIBROMYALGIA
     Dosage: 200 mg, 1x/day
     Route: 048
     Dates: start: 201208, end: 2012
  2. LYRICA [Suspect]
     Dosage: 75 mg, 1x/day
     Route: 048
     Dates: start: 2012, end: 2012
  3. LYRICA [Suspect]
     Dosage: 50 mg, 1x/day
     Route: 048
     Dates: start: 2012
  4. MORPHINE [Concomitant]
     Indication: PAIN
     Dosage: UNK
  5. MORPHINE [Concomitant]
     Indication: FIBROMYALGIA
  6. OXYCODONE [Concomitant]
     Indication: PAIN
     Dosage: UNK

REACTIONS (4)
  - Depression [Unknown]
  - Neuralgia [Unknown]
  - Memory impairment [Unknown]
  - Headache [Unknown]
